FAERS Safety Report 19945549 (Version 1)
Quarter: 2021Q4

REPORT INFORMATION
  Report Type: Report from Study
  Country: BG (occurrence: BG)
  Receive Date: 20211012
  Receipt Date: 20211012
  Transmission Date: 20220304
  Serious: Yes (Hospitalization)
  Sender: FDA-Public Use
  Company Number: BG-CELLTRION HEALTHCARE HUNGARY KFT-2019BG028774

PATIENT

DRUGS (7)
  1. TRASTUZUMAB [Suspect]
     Active Substance: TRASTUZUMAB
     Indication: HER2 positive breast cancer
     Dosage: 450 MILLIGRAM, Q3W, Q3W - EVERY 3 WEEKS
     Route: 041
     Dates: start: 20181121
  2. TRASTUZUMAB [Suspect]
     Active Substance: TRASTUZUMAB
     Dosage: 450 MILLIGRAM, Q2W (450 MILLIGRAM, Q3W)
     Route: 041
     Dates: start: 20181121
  3. TAXOTERE [Suspect]
     Active Substance: DOCETAXEL
     Indication: HER2 positive breast cancer
     Dosage: 160 MILLIGRAM, Q2W (160 MILLIGRAM, Q3W)
     Route: 042
     Dates: start: 20181121
  4. TAXOTERE [Suspect]
     Active Substance: DOCETAXEL
     Dosage: 160 MILLIGRAM, Q3W, EVERY 3 WEEKS
     Route: 042
     Dates: start: 20181121
  5. PERTUZUMAB [Suspect]
     Active Substance: PERTUZUMAB
     Indication: HER2 positive breast cancer
     Dosage: 420 MILLIGRAM, Q2W (420 MILLIGRAM, Q3W)
     Route: 041
     Dates: start: 20181121
  6. PERTUZUMAB [Suspect]
     Active Substance: PERTUZUMAB
     Dosage: 420 MILLIGRAM, Q2W (420 MILLIGRAM, Q3W)
     Route: 041
     Dates: start: 20181121
  7. DOCETAXEL [Suspect]
     Active Substance: DOCETAXEL
     Indication: HER2 positive breast cancer
     Dosage: 160 MG, EVERY 3 WEEKS
     Route: 042
     Dates: start: 20181121

REACTIONS (2)
  - Colitis ischaemic [Recovered/Resolved with Sequelae]
  - Febrile neutropenia [Recovered/Resolved with Sequelae]

NARRATIVE: CASE EVENT DATE: 20181126
